FAERS Safety Report 18204992 (Version 1)
Quarter: 2020Q3

REPORT INFORMATION
  Report Type: Other
  Country: CA (occurrence: CA)
  Receive Date: 20200827
  Receipt Date: 20200827
  Transmission Date: 20201103
  Serious: Yes (Hospitalization)
  Sender: FDA-Public Use
  Company Number: CA-CELLTRION INC.-2020CA025472

PATIENT

DRUGS (19)
  1. APREPITANT. [Suspect]
     Active Substance: APREPITANT
     Indication: SUPPORTIVE CARE
     Dosage: 80 MG 1 EVERY 1 DAYS
     Route: 048
  2. FILGRASTIM [Suspect]
     Active Substance: FILGRASTIM
     Indication: SUPPORTIVE CARE
     Dosage: 480 MG 1 EVERY 1 DAYS
     Route: 048
  3. PACLITAXEL. [Suspect]
     Active Substance: PACLITAXEL
     Indication: SUPPORTIVE CARE
     Dosage: 393 MG
     Route: 042
  4. PACLITAXEL. [Suspect]
     Active Substance: PACLITAXEL
     Dosage: 303 MG
     Route: 042
  5. PEGFILGRASTIM [Suspect]
     Active Substance: PEGFILGRASTIM
     Indication: SUPPORTIVE CARE
     Dosage: 6 MG
     Route: 058
  6. RANITIDINE. [Suspect]
     Active Substance: RANITIDINE
     Indication: TARDIVE DYSKINESIA
     Dosage: 150 MG 1 EVERY 2 WEEKS
     Route: 048
  7. DEXAMETHASONE. [Suspect]
     Active Substance: DEXAMETHASONE
     Indication: SUPPORTIVE CARE
     Dosage: 20 MG 1 EVERY 1 DAYS
     Route: 048
  8. LEVOFLOXACIN. [Suspect]
     Active Substance: LEVOFLOXACIN
     Indication: TARDIVE DYSKINESIA
     Dosage: 500 MG 1 EVERY 1 DAYS
     Route: 048
  9. TRASTUZUMAB (UNKNOWN) [Suspect]
     Active Substance: TRASTUZUMAB
     Dosage: 626 MG
     Route: 065
  10. ENOXAPARIN [Suspect]
     Active Substance: ENOXAPARIN
     Indication: TARDIVE DYSKINESIA
     Dosage: 150 MG 1 EVERY 1 DAYS
     Route: 058
  11. ONDANSETRON [Suspect]
     Active Substance: ONDANSETRON
     Indication: SUPPORTIVE CARE
     Dosage: 8 MG
     Route: 048
  12. PROCYTOX [Suspect]
     Active Substance: CYCLOPHOSPHAMIDE
     Indication: BREAST CANCER
     Dosage: 1360 MG 1 EVERY 2 WEEKS
     Route: 042
  13. APREPITANT. [Suspect]
     Active Substance: APREPITANT
     Dosage: 125 MG
     Route: 048
  14. DOXORUBICIN [Suspect]
     Active Substance: DOXORUBICIN
     Indication: BREAST CANCER
     Dosage: 136 MG 1 EVERY 2 WEEKS
     Route: 042
  15. PACLITAXEL. [Suspect]
     Active Substance: PACLITAXEL
     Indication: SUPPORTIVE CARE
     Dosage: 243 MG
     Route: 042
  16. TRASTUZUMAB (UNKNOWN) [Suspect]
     Active Substance: TRASTUZUMAB
     Indication: TARDIVE DYSKINESIA
     Dosage: 866 MG
     Route: 065
  17. BETAMETHASONE. [Suspect]
     Active Substance: BETAMETHASONE
     Indication: TARDIVE DYSKINESIA
     Route: 048
  18. LORAZEPAM. [Suspect]
     Active Substance: LORAZEPAM
     Indication: TARDIVE DYSKINESIA
     Dosage: 0.5 MG 2 EVERY 1 DAYS
     Route: 048
  19. METOCLOPRAMIDE. [Suspect]
     Active Substance: METOCLOPRAMIDE
     Indication: TARDIVE DYSKINESIA
     Dosage: 10 MG 4 EVERY 1 DAYS
     Route: 048

REACTIONS (11)
  - Atelectasis [Recovered/Resolved]
  - Hypoxia [Recovered/Resolved]
  - Off label use [Recovered/Resolved]
  - Fatigue [Recovered/Resolved]
  - Gastrointestinal disorder [Recovered/Resolved]
  - Nausea [Recovered/Resolved]
  - Rash [Recovered/Resolved]
  - Computerised tomogram thorax abnormal [Recovered/Resolved]
  - Dyspnoea [Recovered/Resolved]
  - Cough [Recovered/Resolved]
  - Pyrexia [Recovered/Resolved]
